FAERS Safety Report 5991515-3 (Version None)
Quarter: 2008Q4

REPORT INFORMATION
  Report Type: 
  Country: None (occurrence: None)
  Receive Date: 20081211
  Receipt Date: 20081201
  Transmission Date: 20090506
  Serious: Yes (Hospitalization)
  Sender: FDA-Public Use
  Company Number: US-ABBOTT-08P-163-0490317-00

PATIENT
  Sex: Female
  Weight: 79.45 kg

DRUGS (2)
  1. ERYTHROMYCIN [Suspect]
     Indication: PNEUMONIA
     Dates: start: 19880101, end: 19880101
  2. ERYTHROMYCIN [Suspect]
     Indication: PHARYNGITIS STREPTOCOCCAL

REACTIONS (2)
  - DEHYDRATION [None]
  - VOMITING [None]
